FAERS Safety Report 9260685 (Version 1)
Quarter: 2013Q2

REPORT INFORMATION
  Report Type: Spontaneous
  Country: IT (occurrence: IT)
  Receive Date: 20130429
  Receipt Date: 20130429
  Transmission Date: 20140414
  Serious: Yes (Hospitalization)
  Sender: FDA-Public Use
  Company Number: IT-SANOFI-AVENTIS-2013SA042473

PATIENT
  Age: 50 Year
  Sex: Male

DRUGS (4)
  1. RIFAMPICIN [Suspect]
     Indication: PULMONARY TUBERCULOSIS
     Route: 065
  2. ISONIAZID [Concomitant]
     Indication: PULMONARY TUBERCULOSIS
  3. PYRAZINAMIDE [Concomitant]
     Indication: PULMONARY TUBERCULOSIS
  4. ETHAMBUTOL [Concomitant]
     Indication: PULMONARY TUBERCULOSIS

REACTIONS (20)
  - Leukocyturia [Recovering/Resolving]
  - Renal failure [Recovering/Resolving]
  - Blood creatinine increased [Recovered/Resolved]
  - Creatinine renal clearance decreased [Recovering/Resolving]
  - Urine sodium increased [Recovered/Resolved]
  - Blood urea increased [Recovering/Resolving]
  - Metabolic acidosis [Recovered/Resolved]
  - Base excess negative [Recovered/Resolved]
  - Blood bicarbonate decreased [Recovered/Resolved]
  - Hypokalaemia [Recovered/Resolved]
  - Anaemia [Unknown]
  - Focal segmental glomerulosclerosis [Recovering/Resolving]
  - Polyuria [Recovered/Resolved]
  - Protein urine present [Recovering/Resolving]
  - Glucose urine present [Recovering/Resolving]
  - Ultrasound abdomen abnormal [Recovering/Resolving]
  - Blood immunoglobulin A increased [Recovering/Resolving]
  - Blood immunoglobulin G increased [Recovering/Resolving]
  - DNA antibody positive [Recovering/Resolving]
  - Tubulointerstitial nephritis [Recovering/Resolving]
